FAERS Safety Report 4898151-0 (Version None)
Quarter: 2006Q1

REPORT INFORMATION
  Report Type: 
  Country: None (occurrence: None)
  Receive Date: 20060106
  Receipt Date: 20041116
  Transmission Date: 20060701
  Serious: Yes (Other)
  Sender: FDA-Public Use
  Company Number: HQWYE512318NOV04

PATIENT
  Age: 19 Year
  Sex: Female
  Weight: 118.04 kg

DRUGS (1)
  1. PRIMATENE MIST [Suspect]
     Indication: ASTHMA
     Dosage: 1 INHALATION EVERY OTHER DAY AS NEEDED, INHALATION
     Route: 055
     Dates: end: 20041108

REACTIONS (1)
  - RASH ERYTHEMATOUS [None]
